FAERS Safety Report 15498192 (Version 2)
Quarter: 2020Q3

REPORT INFORMATION
  Report Type: Spontaneous
  Country: AU (occurrence: AU)
  Receive Date: 20181015
  Receipt Date: 20181016
  Transmission Date: 20201105
  Serious: Yes (Other)
  Sender: FDA-Public Use
  Company Number: AU-ROCHE-2196107

PATIENT
  Sex: Female

DRUGS (1)
  1. ALECTINIB. [Suspect]
     Active Substance: ALECTINIB
     Indication: PRODUCT USED FOR UNKNOWN INDICATION
     Route: 065

REACTIONS (9)
  - Hypoaesthesia [Recovering/Resolving]
  - Visual impairment [Unknown]
  - Partial seizures [Recovering/Resolving]
  - Temperature regulation disorder [Unknown]
  - Fatigue [Recovering/Resolving]
  - Myalgia [Recovering/Resolving]
  - Motor dysfunction [Recovering/Resolving]
  - Constipation [Unknown]
  - Gait disturbance [Unknown]
